FAERS Safety Report 9636512 (Version 2)
Quarter: 2013Q4

REPORT INFORMATION
  Report Type: Spontaneous
  Country: US (occurrence: None)
  Receive Date: 20131017
  Receipt Date: 20131112
  Transmission Date: 20140711
  Serious: Yes (Other)
  Sender: FDA-Public Use
  Company Number: SYM-2013-11386

PATIENT
  Age: 63 Year
  Sex: Female

DRUGS (40)
  1. HALEFLYTELY-BISACODYL BOWE (HALFLYTELY + BISACODYL BOWEL PREP KIT) (SODIUM BICARBONATE, BISACODYL, POTASSIUM CHLORIDE, SODIUM CHLORIDE, MACROGOL) [Concomitant]
  2. VITAMIN D (COLECALCIFEROL) [Concomitant]
  3. FREESTYLE LANCETS (OTHER THERAPEUTIC PRODUCTS) [Concomitant]
  4. ZOLPIDEM TARTRATE (ZOLPIDEM TARTRATE) [Concomitant]
  5. PROAIR HFA (SALBUTAMOL SULFATE) [Concomitant]
  6. FEXOFENADINE HCL (FEXOFENADINE HYDROCHLORIDE) [Concomitant]
  7. LEVAQUIN (LEVOFLOXACIN) [Concomitant]
  8. AMBIEN CR (ZOLPIDEM TARTRATE) [Concomitant]
  9. TIZANIDINE (TIZANIDINE) [Concomitant]
  10. LUNESTA (ESZOPICLONE) [Concomitant]
  11. CYMBALTA (DULOXETINE HYDROCHLORIDE) [Concomitant]
  12. CITALOPRAM (CITALOPRAM) [Concomitant]
  13. VALACYCLOVIR (VALACICLOVIR HYDROCHLORIDE) [Concomitant]
  14. LEVETIRACETAM (LEVETIRACETAM) [Concomitant]
  15. NAPROSYN (NAPROXEN) [Concomitant]
  16. VITAMINS (VITAMIN NOS) [Concomitant]
  17. B-COMPLEX (NICOTINAM, W/PYRIDOXI, HCL/RIBOFL./THIAM.HCL) (PYRISDOXINE HYDROCHLORIDE, THIAMINE HYDROCHLORIDE, RIBOFLAVIN, NICOTINAMIDE) [Concomitant]
  18. BONINE (MECLOZINE HYDROCHLORIDE) [Concomitant]
  19. B-D 3 ML SYRINGE (OTHER THERAPEUTIC PRODUCTS) [Concomitant]
  20. FREESTYLE TEST STRIPS (OTHER THERAPEUTIC PRODUCTS) [Concomitant]
  21. ZOLPIDEM (ZOLPIDEM) [Concomitant]
  22. ESTRASORB [Suspect]
     Indication: HOT FLUSH
     Dosage: TOPICAL
     Route: 061
     Dates: start: 2006, end: 2010
  23. TRAZODONE (TRAZODONE) [Concomitant]
  24. TRIAMCINOLONE (TRIAMCINOLONE) [Concomitant]
  25. CIPROFLOXACIN HCL (CIPROFLOXACIN HYDROCHLORIDE) [Concomitant]
  26. LIPRAM 4 (PANCREATIN) [Concomitant]
  27. ARMOUR THYROID (THYROID) [Concomitant]
  28. GUAIFENEX PSE (RESPAIRE-SR-120) [Concomitant]
  29. AVELOX (MOXIFLOXACIN HYDROCHLORIDE) [Concomitant]
  30. OMEPRAZOLE (OMEPRAZOLE) [Concomitant]
  31. AMOXICILLIN (AMOXICILLIN) [Concomitant]
  32. CLARITHROMYCIN (CLARITHROMYCIN) [Concomitant]
  33. ACETAMINOPHEN-COD (PARACETAMOL) [Concomitant]
  34. CYANOCOBALAMIN (CYANOCOBALAMIN) [Concomitant]
  35. FLECTOR (DICLOFENAC SODIUM) [Concomitant]
  36. IBUPROFEN (IBUPROFEN) [Concomitant]
  37. LORAZEPAM (LORAZEPAM) [Concomitant]
  38. GABAPENTIN (GABAPENTIN) [Concomitant]
  39. METRONIDAZOLE (METRONIDAZOLE) [Concomitant]
  40. FLUCONAZOLE (FLUCONAZOLE) [Concomitant]

REACTIONS (2)
  - Epilepsy [None]
  - Dementia [None]
